FAERS Safety Report 23855171 (Version 1)
Quarter: 2024Q2

REPORT INFORMATION
  Report Type: Spontaneous
  Country: US (occurrence: US)
  Receive Date: 20240514
  Receipt Date: 20240514
  Transmission Date: 20240716
  Serious: No
  Sender: FDA-Public Use
  Company Number: US-SA-SAC20240507000673

PATIENT
  Age: 43 Year
  Sex: Female
  Weight: 65.3 kg

DRUGS (1)
  1. DUPIXENT [Suspect]
     Active Substance: DUPILUMAB
     Indication: Chronic rhinosinusitis with nasal polyps
     Dosage: 200 MG, QOW
     Route: 058
     Dates: start: 20230515

REACTIONS (3)
  - Eczema [Unknown]
  - Rash [Unknown]
  - Incorrect dose administered [Unknown]
